FAERS Safety Report 9602447 (Version 3)
Quarter: 2013Q4

REPORT INFORMATION
  Report Type: Spontaneous
  Country: US (occurrence: US)
  Receive Date: 20131007
  Receipt Date: 20131126
  Transmission Date: 20140711
  Serious: Yes (Hospitalization)
  Sender: FDA-Public Use
  Company Number: US-DENDREON CORPORATION-2013PROUSA03144

PATIENT
  Age: 63 Year
  Sex: Male

DRUGS (2)
  1. PROVENGE [Suspect]
     Indication: PROSTATE CANCER METASTATIC
     Dosage: 250 ML, SINGLE
     Route: 042
     Dates: start: 20130718, end: 20130718
  2. PROVENGE [Suspect]
     Dosage: 250 ML, SINGLE
     Route: 042
     Dates: start: 20130808, end: 20130808

REACTIONS (9)
  - Urosepsis [Unknown]
  - Renal failure acute [Unknown]
  - Hypotension [Unknown]
  - Dehydration [Unknown]
  - Respiratory failure [Unknown]
  - Staphylococcal bacteraemia [Unknown]
  - Pneumonia aspiration [Unknown]
  - Systemic inflammatory response syndrome [Unknown]
  - Cholecystitis acute [Unknown]
